FAERS Safety Report 6902129-2 (Version None)
Quarter: 2010Q3

REPORT INFORMATION
  Report Type: 
  Country: None (occurrence: None)
  Receive Date: 20100803
  Receipt Date: 20100727
  Transmission Date: 20110219
  Serious: Yes (Death)
  Sender: FDA-Public Use
  Company Number: US-GILEAD-2010-0030667

PATIENT
  Sex: Female
  Weight: 49.032 kg

DRUGS (15)
  1. LETAIRIS [Suspect]
     Indication: PULMONARY ARTERIAL HYPERTENSION
     Route: 048
     Dates: start: 20091009, end: 20100713
  2. WARFARIN SODIUM [Concomitant]
  3. LASIX [Concomitant]
  4. ALBUTEROL [Concomitant]
  5. SPIRONOLACTONE [Concomitant]
  6. DILTIAZEM [Concomitant]
  7. MORPHINE SULFATE [Concomitant]
  8. LEVOTHYROXINE [Concomitant]
  9. TIKOSYN [Concomitant]
  10. MULTI-VITAMIN [Concomitant]
  11. CALCIUM/VITAMIN D [Concomitant]
  12. FISH OIL [Concomitant]
  13. COLACE [Concomitant]
  14. MUCINEX [Concomitant]
  15. ASPIRIN [Concomitant]

REACTIONS (2)
  - RESPIRATORY ARREST [None]
  - RESPIRATORY FAILURE [None]
